FAERS Safety Report 16135202 (Version 2)
Quarter: 2019Q2

REPORT INFORMATION
  Report Type: Report from Study
  Country: US (occurrence: US)
  Receive Date: 20190329
  Receipt Date: 20190405
  Transmission Date: 20190711
  Serious: Yes (Hospitalization)
  Sender: FDA-Public Use
  Company Number: US-REGENERON PHARMACEUTICALS, INC.-2019-23829

PATIENT

DRUGS (1)
  1. EYLEA [Suspect]
     Active Substance: AFLIBERCEPT
     Indication: MACULAR DEGENERATION
     Dosage: LEFT EYE
     Route: 031

REACTIONS (5)
  - Cardiac disorder [Unknown]
  - Dizziness [Unknown]
  - Visual impairment [Unknown]
  - Vertigo [Unknown]
  - Fall [Unknown]
